FAERS Safety Report 4875739-4 (Version None)
Quarter: 2006Q1

REPORT INFORMATION
  Report Type: 
  Country: None (occurrence: None)
  Receive Date: 20060105
  Receipt Date: 20051226
  Transmission Date: 20060701
  Serious: Yes (Other)
  Sender: FDA-Public Use
  Company Number: HQWYE157628DEC05

PATIENT
  Age: 70 Year
  Sex: Male

DRUGS (3)
  1. CEFIXIME CHEWABLE [Suspect]
     Indication: INFECTION
     Dosage: 2 TABLETS DAILY, ORAL
     Route: 048
     Dates: start: 20051101
  2. CEFIXIME CHEWABLE [Suspect]
     Indication: PROPHYLAXIS
     Dosage: 2 TABLETS DAILY, ORAL
     Route: 048
     Dates: start: 20051101
  3. FRAXIPARINE (HEPARIN-FRACTION, CALCIUM SALT) [Concomitant]

REACTIONS (1)
  - THROMBOCYTHAEMIA [None]
